FAERS Safety Report 24468073 (Version 3)
Quarter: 2025Q2

REPORT INFORMATION
  Report Type: Spontaneous
  Country: US (occurrence: US)
  Receive Date: 20241018
  Receipt Date: 20250529
  Transmission Date: 20250717
  Serious: Yes (Hospitalization)
  Sender: Phathom Pharmaceuticals
  Company Number: US-PHATHOM PHARMACEUTICALS INC.-2024PHT00903

PATIENT
  Age: 73 Year
  Sex: Female
  Weight: 58.05 kg

DRUGS (5)
  1. VOQUEZNA [Suspect]
     Active Substance: VONOPRAZAN FUMARATE
     Indication: Oesophageal stenosis
     Dosage: 20 MG, 1X/DAY
     Route: 048
     Dates: start: 202408, end: 202408
  2. VOQUEZNA [Suspect]
     Active Substance: VONOPRAZAN FUMARATE
     Indication: Chronic gastritis
     Dosage: 20 MG, 1X/DAY
     Route: 048
     Dates: start: 20240911, end: 20240914
  3. VOQUEZNA [Suspect]
     Active Substance: VONOPRAZAN FUMARATE
     Dosage: 20 MG, 1X/DAY
     Route: 048
     Dates: start: 20250224, end: 20250404
  4. FAMOTIDINE [Concomitant]
     Active Substance: FAMOTIDINE
  5. SYNTHROID [Concomitant]
     Active Substance: LEVOTHYROXINE SODIUM

REACTIONS (13)
  - Atrial fibrillation [Not Recovered/Not Resolved]
  - Tremor [Recovered/Resolved]
  - Feeling jittery [Recovered/Resolved]
  - Rectal haemorrhage [Recovered/Resolved]
  - Diarrhoea haemorrhagic [Unknown]
  - Gastrointestinal pain [Unknown]
  - Abdominal pain upper [Recovered/Resolved]
  - Tension headache [Recovered/Resolved]
  - Abdominal distension [Unknown]
  - Abdominal pain [Unknown]
  - Diarrhoea [Recovered/Resolved]
  - Blood magnesium decreased [Unknown]
  - Off label use [Recovered/Resolved]

NARRATIVE: CASE EVENT DATE: 20240801
